FAERS Safety Report 15171522 (Version 1)
Quarter: 2018Q3

REPORT INFORMATION
  Report Type: Spontaneous
  Country: US (occurrence: US)
  Receive Date: 20180720
  Receipt Date: 20180720
  Transmission Date: 20181010
  Serious: No
  Sender: FDA-Public Use
  Company Number: US-SHIRE-US201825863

PATIENT
  Sex: Female
  Weight: 22.68 kg

DRUGS (4)
  1. CLONIDINE HCL [Concomitant]
     Active Substance: CLONIDINE HYDROCHLORIDE
     Indication: SLEEP DISORDER
  2. GUANFACINE. [Concomitant]
     Active Substance: GUANFACINE
     Indication: PROPHYLAXIS
  3. VYVANSE [Suspect]
     Active Substance: LISDEXAMFETAMINE DIMESYLATE
     Indication: ATTENTION DEFICIT/HYPERACTIVITY DISORDER
     Dosage: 30 MG, 1X/DAY:QD
     Route: 048
  4. VYVANSE [Suspect]
     Active Substance: LISDEXAMFETAMINE DIMESYLATE
     Dosage: 40 MG, 1X/DAY:QD
     Route: 048

REACTIONS (8)
  - Abnormal behaviour [Unknown]
  - Anger [Unknown]
  - Insomnia [Unknown]
  - Pain [Unknown]
  - Malaise [Unknown]
  - Therapeutic response shortened [Unknown]
  - Weight decreased [Unknown]
  - Decreased appetite [Unknown]
